FAERS Safety Report 20160164 (Version 5)
Quarter: 2022Q2

REPORT INFORMATION
  Report Type: Report from Study
  Country: CN (occurrence: CN)
  Receive Date: 20211208
  Receipt Date: 20220527
  Transmission Date: 20220721
  Serious: Yes (Hospitalization)
  Sender: FDA-Public Use
  Company Number: CN-ASTELLAS-2021US046676

PATIENT
  Age: 66 Year
  Sex: Male

DRUGS (29)
  1. ENFORTUMAB VEDOTIN [Suspect]
     Active Substance: ENFORTUMAB VEDOTIN
     Indication: Transitional cell carcinoma
     Dosage: 1.25 MG/KG, EVERY 4 WEEKS (C1D1)
     Route: 042
     Dates: start: 20211026, end: 20211026
  2. ENFORTUMAB VEDOTIN [Suspect]
     Active Substance: ENFORTUMAB VEDOTIN
     Dosage: 1 MG/KG, EVERY 4 WEEKS (C1D8)
     Route: 042
     Dates: start: 20211103, end: 20211103
  3. ENFORTUMAB VEDOTIN [Suspect]
     Active Substance: ENFORTUMAB VEDOTIN
     Dosage: 0.75 MG/KG, EVERY 4 WEEKS (C1D15)
     Route: 042
     Dates: start: 20211111, end: 20211111
  4. ENFORTUMAB VEDOTIN [Suspect]
     Active Substance: ENFORTUMAB VEDOTIN
     Dosage: 0.75 MG/KG, EVERY 4 WEEKS (C2D1)
     Route: 042
     Dates: start: 20211125, end: 20211125
  5. ENFORTUMAB VEDOTIN [Suspect]
     Active Substance: ENFORTUMAB VEDOTIN
     Dosage: 1 MG/KG, EVERY 4 WEEKS (C2D8)
     Route: 042
     Dates: start: 20211202, end: 20211202
  6. ENFORTUMAB VEDOTIN [Suspect]
     Active Substance: ENFORTUMAB VEDOTIN
     Dosage: 1 MG/KG, EVERY 4 WEEKS (C3D1)
     Route: 042
     Dates: start: 20211223, end: 20211223
  7. ENFORTUMAB VEDOTIN [Suspect]
     Active Substance: ENFORTUMAB VEDOTIN
     Dosage: 1 MG/KG, EVERY 4 WEEKS (C3D8)
     Route: 042
     Dates: start: 20211230, end: 20211230
  8. ENFORTUMAB VEDOTIN [Suspect]
     Active Substance: ENFORTUMAB VEDOTIN
     Dosage: 1 MG/KG, EVERY 4 WEEKS (C3D15)
     Route: 042
     Dates: start: 20220106, end: 20220106
  9. ENFORTUMAB VEDOTIN [Suspect]
     Active Substance: ENFORTUMAB VEDOTIN
     Dosage: 1 MG/KG, EVERY 4 WEEKS (C4D1)
     Route: 042
     Dates: start: 20220121, end: 20220121
  10. ENFORTUMAB VEDOTIN [Suspect]
     Active Substance: ENFORTUMAB VEDOTIN
     Dosage: 1 MG/KG, EVERY 4 WEEKS (C4D8)
     Route: 042
     Dates: start: 20220128, end: 20220128
  11. ENFORTUMAB VEDOTIN [Suspect]
     Active Substance: ENFORTUMAB VEDOTIN
     Dosage: 1 MG/KG, EVERY 4 WEEKS (C4D15)
     Route: 042
     Dates: start: 20220207, end: 20220207
  12. ENFORTUMAB VEDOTIN [Suspect]
     Active Substance: ENFORTUMAB VEDOTIN
     Dosage: 1 MG/KG, EVERY 4 WEEKS (C5D1)
     Route: 042
     Dates: start: 20220221, end: 20220221
  13. METHYLPREDNISOLONE SODIUM SUCCINATE [Concomitant]
     Active Substance: METHYLPREDNISOLONE SODIUM SUCCINATE
     Indication: Product used for unknown indication
     Dosage: 40 MG, OTHER (ONCE; IVGTT)(PRVENTIVE MEDICATION)
     Route: 042
     Dates: start: 20211103, end: 20211103
  14. METHYLPREDNISOLONE SODIUM SUCCINATE [Concomitant]
     Active Substance: METHYLPREDNISOLONE SODIUM SUCCINATE
     Dosage: 40 MG, OTHER (ONCE; IVGTT)(PRVENTIVE MEDICATION)
     Route: 042
     Dates: start: 20211111, end: 20211111
  15. METHYLPREDNISOLONE SODIUM SUCCINATE [Concomitant]
     Active Substance: METHYLPREDNISOLONE SODIUM SUCCINATE
     Dosage: 40 MG, OTHER (ONCE; IVGTT)(PRVENTIVE MEDICATION)
     Route: 042
     Dates: start: 20211125, end: 20211125
  16. GRANULOCYTE COLONY-STIMULATING FACTOR NOS [Concomitant]
     Active Substance: GRANULOCYTE COLONY-STIMULATING FACTOR NOS
     Indication: Neutropenia
     Dosage: 0.2 MG, ONCE DAILY
     Route: 058
     Dates: start: 20211110, end: 20211110
  17. GRANULOCYTE COLONY-STIMULATING FACTOR NOS [Concomitant]
     Active Substance: GRANULOCYTE COLONY-STIMULATING FACTOR NOS
     Dosage: 0.2 MG, ONCE DAILY
     Route: 058
     Dates: start: 20211116, end: 20211117
  18. GRANULOCYTE COLONY-STIMULATING FACTOR NOS [Concomitant]
     Active Substance: GRANULOCYTE COLONY-STIMULATING FACTOR NOS
     Dosage: 0.1 MG, ONCE DAILY
     Route: 058
     Dates: start: 20220120, end: 20220122
  19. LEUCOGEN [Concomitant]
     Active Substance: LEUCOGEN
     Indication: Anaemia
     Route: 048
     Dates: start: 20211111
  20. METHYLPREDNISOLONE [Concomitant]
     Active Substance: METHYLPREDNISOLONE
     Indication: Pruritus
     Route: 048
     Dates: start: 20211111, end: 20211124
  21. INDOMETHACIN [Concomitant]
     Active Substance: INDOMETHACIN
     Indication: Cancer pain
     Dosage: 0.1 G, ONCE DAILY
     Route: 054
     Dates: start: 20211111, end: 20211120
  22. LORATADINE [Concomitant]
     Active Substance: LORATADINE
     Indication: Pruritus
     Route: 048
     Dates: start: 20211111, end: 20211124
  23. MEGESTROL ACETATE [Concomitant]
     Active Substance: MEGESTROL ACETATE
     Indication: Decreased appetite
     Dosage: 0.16 G, ONCE DAILY
     Route: 048
     Dates: start: 20211125, end: 20220128
  24. POLYETHYLENE GLYCOL 4000 [Concomitant]
     Active Substance: POLYETHYLENE GLYCOL 4000
     Indication: Constipation
     Dosage: UNK UNK, ONCE DAILY (1 BAG)
     Route: 048
     Dates: start: 20211127
  25. LACTULOSE [Concomitant]
     Active Substance: LACTULOSE
     Indication: Constipation
     Route: 048
     Dates: start: 20211127
  26. CONG RONG TONG BIAN [Concomitant]
     Indication: Constipation
     Route: 048
     Dates: start: 20211127
  27. OXYCODONE HYDROCHLORIDE [Concomitant]
     Active Substance: OXYCODONE HYDROCHLORIDE
     Indication: Cancer pain
     Route: 048
     Dates: start: 202110
  28. GABAPENTIN [Concomitant]
     Active Substance: GABAPENTIN
     Indication: Cancer pain
     Dosage: 0.6 G, ONCE DAILY
     Route: 048
     Dates: start: 202106
  29. AMLODIPINE\VALSARTAN [Concomitant]
     Active Substance: AMLODIPINE\VALSARTAN
     Indication: Hypertension
     Dosage: 1 TABLET, AS NEEDED
     Route: 048
     Dates: start: 2018, end: 202112

REACTIONS (1)
  - Deep vein thrombosis [Recovering/Resolving]

NARRATIVE: CASE EVENT DATE: 20211129
